FAERS Safety Report 26063005 (Version 2)
Quarter: 2025Q4

REPORT INFORMATION
  Report Type: Spontaneous
  Country: JP (occurrence: JP)
  Receive Date: 20251119
  Receipt Date: 20251210
  Transmission Date: 20260118
  Serious: Yes (Death)
  Sender: ROCHE
  Company Number: JP-CHUGAI-2025036528

PATIENT
  Age: 75 Year

DRUGS (1)
  1. VABYSMO [Suspect]
     Active Substance: FARICIMAB-SVOA
     Indication: Neovascular age-related macular degeneration
     Dosage: 0.05 MILLILITER, ONCE/MONTH,?ONE EYE AT SIX-MONTH INTERVALS, THE OTHER EYE AT THREE-MONTH INTERVALS
     Route: 031

REACTIONS (1)
  - Death [Fatal]
